FAERS Safety Report 20542864 (Version 1)
Quarter: 2022Q1

REPORT INFORMATION
  Report Type: Spontaneous
  Country: US (occurrence: US)
  Receive Date: 20220302
  Receipt Date: 20220302
  Transmission Date: 20220423
  Serious: Yes (Other)
  Sender: FDA-Public Use
  Company Number: US-MALLINCKRODT-T202200894

PATIENT
  Age: 28 Year
  Sex: Female

DRUGS (1)
  1. INOMAX [Suspect]
     Active Substance: NITRIC OXIDE
     Indication: Right ventricular failure
     Dosage: UNK, VIA INHALATION
     Route: 055

REACTIONS (4)
  - Haemodynamic instability [Recovering/Resolving]
  - Condition aggravated [Recovering/Resolving]
  - Drug ineffective for unapproved indication [Recovering/Resolving]
  - Product use issue [Unknown]
